FAERS Safety Report 5953738-9 (Version None)
Quarter: 2008Q4

REPORT INFORMATION
  Report Type: 
  Country: None (occurrence: None)
  Receive Date: 20081114
  Receipt Date: 20081106
  Transmission Date: 20090506
  Serious: Yes (Hospitalization, Other)
  Sender: FDA-Public Use
  Company Number: GB-BAXTER-2008BH012001

PATIENT
  Age: 5 Month
  Sex: Female

DRUGS (6)
  1. CYCLOPHOSPHAMIDE [Suspect]
     Indication: OFF LABEL USE
     Dosage: DOSE UNIT:UNKNOWN
     Route: 065
     Dates: start: 20081009, end: 20081012
  2. CYCLOSPORINE [Suspect]
     Indication: DRUG USE FOR UNKNOWN INDICATION
     Dosage: DOSE UNIT:UNKNOWN
     Route: 065
  3. IMMUNE GLOBULIN INTRAVENOUS (HUMAN) [Suspect]
     Indication: DRUG USE FOR UNKNOWN INDICATION
     Dosage: DOSE UNIT:UNKNOWN
     Route: 065
  4. PALIFERMIN [Suspect]
     Indication: AUTOIMMUNE DISORDER
     Route: 065
     Dates: start: 20081010
  5. PALIFERMIN [Suspect]
     Indication: OFF LABEL USE
     Route: 065
     Dates: start: 20081010
  6. TREOSULFAN [Concomitant]

REACTIONS (2)
  - CONVULSION [None]
  - RASH [None]
